FAERS Safety Report 8769489 (Version 1)
Quarter: 2012Q4

REPORT INFORMATION
  Report Type: 
  Country: CN (occurrence: CN)
  Receive Date: 20120905
  Receipt Date: 20120905
  Transmission Date: 20130627
  Serious: Yes (Hospitalization)
  Sender: FDA-Public Use
  Company Number: CN-ASTRAZENECA-2012SE67979

PATIENT
  Age: 26299 Day
  Sex: Male
  Weight: 60 kg

DRUGS (1)
  1. ROSUVASTATIN [Suspect]
     Indication: HYPERLIPASAEMIA
     Route: 048
     Dates: start: 20110901, end: 20110919

REACTIONS (2)
  - Tremor [Recovered/Resolved]
  - Myalgia [Recovered/Resolved]
